FAERS Safety Report 11570079 (Version 2)
Quarter: 2015Q4

REPORT INFORMATION
  Report Type: Spontaneous
  Country: US (occurrence: US)
  Receive Date: 20150929
  Receipt Date: 20151117
  Transmission Date: 20160304
  Serious: No
  Sender: FDA-Public Use
  Company Number: US-PFIZER INC-2015318001

PATIENT
  Sex: Male

DRUGS (8)
  1. JANUVIA [Suspect]
     Active Substance: SITAGLIPTIN PHOSPHATE
     Dosage: UNK
  2. LYRICA [Suspect]
     Active Substance: PREGABALIN
     Indication: DIABETIC NEUROPATHY
     Dosage: UNK
  3. NOVOLOG [Suspect]
     Active Substance: INSULIN ASPART
  4. CYMBALTA [Suspect]
     Active Substance: DULOXETINE HYDROCHLORIDE
     Dosage: UNK
  5. ZETIA [Suspect]
     Active Substance: EZETIMIBE
     Dosage: UNK
  6. NOVOLIN [Suspect]
     Active Substance: INSULIN HUMAN
     Dosage: UNK
  7. LEVEMIR [Suspect]
     Active Substance: INSULIN DETEMIR
     Dosage: UNK
  8. COMBIVENT [Suspect]
     Active Substance: ALBUTEROL SULFATE\IPRATROPIUM BROMIDE
     Dosage: UNK

REACTIONS (10)
  - Nausea [Unknown]
  - Pain [Unknown]
  - Gait disturbance [Unknown]
  - Asthenia [Unknown]
  - Mood altered [Unknown]
  - Drug withdrawal syndrome [Unknown]
  - Malaise [Unknown]
  - Decreased appetite [Unknown]
  - Insomnia [Unknown]
  - Vomiting [Unknown]
